FAERS Safety Report 7453622-8 (Version None)
Quarter: 2011Q2

REPORT INFORMATION
  Report Type: 
  Country: None (occurrence: None)
  Receive Date: 20110502
  Receipt Date: 20110425
  Transmission Date: 20111010
  Serious: Yes (Other)
  Sender: FDA-Public Use
  Company Number: US-SANOFI-AVENTIS-2011SA025880

PATIENT
  Age: 77 Year
  Sex: Female

DRUGS (1)
  1. PLAVIX [Suspect]
     Route: 065
     Dates: start: 19970101

REACTIONS (2)
  - UTERINE CANCER [None]
  - OFF LABEL USE [None]
